FAERS Safety Report 8297652-5 (Version None)
Quarter: 2012Q2

REPORT INFORMATION
  Report Type: 
  Country: None (occurrence: None)
  Receive Date: 20120419
  Receipt Date: 20120413
  Transmission Date: 20120825
  Serious: Yes (Hospitalization)
  Sender: FDA-Public Use
  Company Number: DE-PFIZER INC-2012092363

PATIENT
  Sex: Male
  Weight: 95 kg

DRUGS (11)
  1. LEVOTHYROXINE [Concomitant]
     Dosage: 50 UG, DAILY
     Dates: start: 19990415
  2. METOPROLOL TARTRATE AND HYDROCHLOROTHIAZIDE [Concomitant]
     Dosage: 47.5 MG, DAILY
     Dates: start: 20050701
  3. NEBIDO [Concomitant]
     Dosage: 1000 MG, UNK
     Dates: start: 20051108, end: 20060108
  4. CALCIUM [Concomitant]
     Dosage: UNK
     Dates: start: 20050701
  5. PREDNISONE TAB [Concomitant]
     Indication: BLOOD CORTICOTROPHIN DECREASED
     Dosage: 5 MG, DAILY
     Dates: start: 19990415
  6. ANDRODERM [Concomitant]
     Dosage: DAILY
     Dates: start: 20051107
  7. SIMVASTATIN [Concomitant]
     Dosage: 20 MG, DAILY
     Dates: start: 20090210
  8. TESTOSTERONE [Concomitant]
     Dosage: 250 MG, DAILY
     Dates: start: 19990601
  9. TESTOSTERONE [Concomitant]
     Dosage: 5 MG, UNK
     Dates: start: 20060109
  10. SOMATROPIN [Suspect]
     Indication: HYPOPITUITARISM
     Dosage: 0.2 MG DAILY, 7 INJECTION/ WEEK
     Dates: start: 20001205
  11. VITAMIN D [Concomitant]
     Dosage: UNK
     Dates: start: 20010701

REACTIONS (2)
  - THYROID DISORDER [None]
  - CEREBROVASCULAR ACCIDENT [None]
